FAERS Safety Report 10261715 (Version 1)
Quarter: 2014Q2

REPORT INFORMATION
  Report Type: Spontaneous
  Country: US (occurrence: US)
  Receive Date: 20140626
  Receipt Date: 20140626
  Transmission Date: 20141212
  Serious: No
  Sender: FDA-Public Use
  Company Number: US-PFIZER INC-2014171846

PATIENT
  Sex: Female

DRUGS (1)
  1. ESTRING [Suspect]
     Indication: DYSPAREUNIA
     Dosage: UNK
     Dates: start: 20140531, end: 20140606

REACTIONS (4)
  - Oral pruritus [Recovered/Resolved]
  - Rash [Recovered/Resolved]
  - Nasal oedema [Recovered/Resolved]
  - Urticaria [Recovered/Resolved]
